APPROVED DRUG PRODUCT: ACCURETIC
Active Ingredient: HYDROCHLOROTHIAZIDE; QUINAPRIL HYDROCHLORIDE
Strength: 25MG;EQ 20MG BASE **Federal Register determination that product was not discontinued or withdrawn for safety or effectiveness reasons**
Dosage Form/Route: TABLET;ORAL
Application: N020125 | Product #003
Applicant: PFIZER PHARMACEUTICALS LTD
Approved: Dec 28, 1999 | RLD: Yes | RS: No | Type: DISCN